FAERS Safety Report 18380481 (Version 2)
Quarter: 2020Q4

REPORT INFORMATION
  Report Type: Spontaneous
  Country: GB (occurrence: GB)
  Receive Date: 20201013
  Receipt Date: 20201203
  Transmission Date: 20210114
  Serious: Yes (Other)
  Sender: FDA-Public Use
  Company Number: GB-ROCHE-2692901

PATIENT
  Age: 45 Year
  Sex: Male

DRUGS (16)
  1. CICLOSPORIN [Suspect]
     Active Substance: CYCLOSPORINE
     Indication: SCLERODERMA
  2. PREDNISONE. [Suspect]
     Active Substance: PREDNISONE
     Indication: SCLERODERMA
  3. JAKAVI [Suspect]
     Active Substance: RUXOLITINIB
     Indication: HAEMATOLOGICAL MALIGNANCY
     Dosage: UNK
     Route: 048
  4. MYCOPHENOLATE MOFETIL. [Suspect]
     Active Substance: MYCOPHENOLATE MOFETIL
     Indication: GRAFT VERSUS HOST DISEASE IN LUNG
     Dosage: UNK
     Route: 065
  5. MYCOPHENOLATE MOFETIL. [Suspect]
     Active Substance: MYCOPHENOLATE MOFETIL
     Indication: SCLERODERMA
  6. PREDNISONE. [Suspect]
     Active Substance: PREDNISONE
     Indication: GRAFT VERSUS HOST DISEASE IN LUNG
  7. RITUXIMAB. [Suspect]
     Active Substance: RITUXIMAB
     Indication: SCLERODERMA
  8. IMATINIB. [Suspect]
     Active Substance: IMATINIB MESYLATE
     Indication: GRAFT VERSUS HOST DISEASE
     Dosage: UNK
     Route: 065
  9. RITUXIMAB. [Suspect]
     Active Substance: RITUXIMAB
     Indication: GRAFT VERSUS HOST DISEASE
  10. CICLOSPORIN [Suspect]
     Active Substance: CYCLOSPORINE
     Indication: GRAFT VERSUS HOST DISEASE
     Dosage: UNK
     Route: 065
  11. CICLOSPORIN [Suspect]
     Active Substance: CYCLOSPORINE
     Indication: GRAFT VERSUS HOST DISEASE IN LUNG
  12. IMATINIB. [Suspect]
     Active Substance: IMATINIB MESYLATE
     Indication: SCLERODERMA
  13. IMATINIB. [Suspect]
     Active Substance: IMATINIB MESYLATE
     Indication: GRAFT VERSUS HOST DISEASE IN LUNG
  14. RITUXIMAB. [Suspect]
     Active Substance: RITUXIMAB
     Indication: COMPLICATIONS OF TRANSPLANTED LUNG
     Dosage: UNK
     Route: 065
  15. PREDNISONE. [Suspect]
     Active Substance: PREDNISONE
     Indication: GRAFT VERSUS HOST DISEASE
     Dosage: 10 MG
     Route: 065
  16. MYCOPHENOLATE MOFETIL. [Suspect]
     Active Substance: MYCOPHENOLATE MOFETIL
     Indication: GRAFT VERSUS HOST DISEASE

REACTIONS (5)
  - Immunosuppression [Unknown]
  - Off label use [Unknown]
  - Graft versus host disease [Not Recovered/Not Resolved]
  - Product use in unapproved indication [Unknown]
  - Disease progression [Unknown]
